FAERS Safety Report 8019735-7 (Version None)
Quarter: 2012Q1

REPORT INFORMATION
  Report Type: 
  Country: None (occurrence: None)
  Receive Date: 20120103
  Receipt Date: 20111216
  Transmission Date: 20120608
  Serious: Yes (Hospitalization)
  Sender: FDA-Public Use
  Company Number: FR-GLAXOSMITHKLINE-B0769835B

PATIENT
  Sex: Male
  Weight: 48 kg

DRUGS (1)
  1. PAZOPANIB [Suspect]
     Indication: PROSTATE CANCER
     Dosage: 800MG PER DAY
     Route: 048
     Dates: start: 20110930

REACTIONS (2)
  - GENERAL PHYSICAL HEALTH DETERIORATION [None]
  - ANAEMIA [None]
